FAERS Safety Report 17108965 (Version 1)
Quarter: 2019Q4

REPORT INFORMATION
  Report Type: Spontaneous
  Country: ES (occurrence: ES)
  Receive Date: 20191204
  Receipt Date: 20191204
  Transmission Date: 20200122
  Serious: Yes (Other)
  Sender: FDA-Public Use
  Company Number: ES-TEVA-2019-ES-1144471

PATIENT
  Age: 38 Year
  Sex: Female
  Weight: 75 kg

DRUGS (5)
  1. LEVOGASTROL 25 MG COMPRIMIDOS , 60 COMPRIMIDOS [Suspect]
     Active Substance: LEVOSULPIRIDE
     Route: 048
     Dates: start: 20190407
  2. VENLAFAXINA 150 MG COMPRIMIDO LIBERACI?N MODIFICADA [Concomitant]
     Dosage: 150 MG
     Route: 048
     Dates: start: 2016, end: 20180528
  3. VENLAFAXINA 75 MG COMPRIMIDO [Concomitant]
     Dosage: 75 MG
     Route: 048
     Dates: start: 20180528, end: 20190415
  4. LEVOGASTROL 25 MG COMPRIMIDOS , 60 COMPRIMIDOS [Suspect]
     Active Substance: LEVOSULPIRIDE
     Indication: DEPRESSION
     Dosage: 150 MG
     Route: 048
     Dates: start: 20190415, end: 20190723
  5. RABEPRAZOL (1105A) [Suspect]
     Active Substance: RABEPRAZOLE
     Indication: ABDOMINAL PAIN UPPER
     Dosage: 20 MG
     Route: 048
     Dates: start: 20190407

REACTIONS (3)
  - Amenorrhoea [Not Recovered/Not Resolved]
  - Hyperprolactinaemia [Not Recovered/Not Resolved]
  - Galactorrhoea [Not Recovered/Not Resolved]

NARRATIVE: CASE EVENT DATE: 20190507
